FAERS Safety Report 8492653-6 (Version None)
Quarter: 2012Q3

REPORT INFORMATION
  Report Type: 
  Country: None (occurrence: None)
  Receive Date: 20120706
  Receipt Date: 20120704
  Transmission Date: 20120928
  Serious: Yes (Death, Hospitalization)
  Sender: FDA-Public Use
  Company Number: AU-B.I. PHARMACEUTICALS,INC./RIDGEFIELD-2012-AU-01205AU

PATIENT
  Sex: Female

DRUGS (10)
  1. METOPROLOL [Concomitant]
  2. TEMAZEPAM [Concomitant]
  3. LEVOTHYROXINE SODIUM [Concomitant]
  4. PRADAXA [Suspect]
     Indication: ATRIAL FIBRILLATION
  5. PRADAXA [Suspect]
     Indication: CEREBROVASCULAR ACCIDENT PROPHYLAXIS
     Dosage: 220 MG
     Dates: start: 20110708, end: 20120701
  6. FUROSEMIDE [Concomitant]
  7. ESOMEPRAZOLE [Concomitant]
  8. ACTONEL [Concomitant]
  9. AMIODARONE HCL [Concomitant]
  10. IMIPRAMINE HCL [Concomitant]

REACTIONS (2)
  - LOSS OF CONSCIOUSNESS [None]
  - MYOCARDIAL INFARCTION [None]
